FAERS Safety Report 25655267 (Version 1)
Quarter: 2025Q3

REPORT INFORMATION
  Report Type: Spontaneous
  Country: US (occurrence: None)
  Receive Date: 20250806
  Receipt Date: 20250806
  Transmission Date: 20251021
  Serious: Yes (Death, Hospitalization)
  Sender: FDA-CTU
  Company Number: None

PATIENT
  Age: 75 Year
  Sex: Male
  Weight: 99.8 kg

DRUGS (1)
  1. APIXABAN [Suspect]
     Active Substance: APIXABAN
     Indication: Atrial fibrillation
     Dosage: FREQUENCY : TWICE A DAY;?
     Route: 048
     Dates: start: 20231214, end: 20250521

REACTIONS (14)
  - Dialysis [None]
  - Insomnia [None]
  - Cerebral haemorrhage [None]
  - Intraventricular haemorrhage [None]
  - Hemiplegia [None]
  - Sedation [None]
  - Neurological decompensation [None]
  - Haemodynamic instability [None]
  - Hypotension [None]
  - Cardiac arrest [None]
  - Pupil fixed [None]
  - Basal ganglia haemorrhage [None]
  - Cerebral mass effect [None]
  - Perfusion brain scan abnormal [None]

NARRATIVE: CASE EVENT DATE: 20250521
